FAERS Safety Report 23855865 (Version 1)
Quarter: 2024Q2

REPORT INFORMATION
  Report Type: Spontaneous
  Country: US (occurrence: US)
  Receive Date: 20240515
  Receipt Date: 20240515
  Transmission Date: 20240716
  Serious: No
  Sender: FDA-Public Use
  Company Number: US-AMGEN-USASP2024091196

PATIENT
  Age: 84 Year
  Sex: Male

DRUGS (1)
  1. NPLATE [Suspect]
     Active Substance: ROMIPLOSTIM
     Indication: Myelodysplastic syndrome
     Dosage: UNK (1 X 125 MCG VIAL) (DOSE ORDERED: 117 MCG AND DOSE REQUESTED: 125 MCG)
     Route: 065

REACTIONS (2)
  - Intercepted product preparation error [Unknown]
  - Off label use [Unknown]

NARRATIVE: CASE EVENT DATE: 20240503
